FAERS Safety Report 9942847 (Version 1)
Quarter: 2014Q1

REPORT INFORMATION
  Report Type: Report from Study
  Country: US (occurrence: US)
  Receive Date: 20140303
  Receipt Date: 20140303
  Transmission Date: 20141002
  Serious: No
  Sender: FDA-Public Use
  Company Number: US-ABBVIE-13P-163-1046154-00

PATIENT
  Age: 28 Year
  Sex: Female

DRUGS (8)
  1. HUMIRA [Suspect]
     Indication: CROHN^S DISEASE
     Dates: start: 20030125
  2. LOESTRIN [Concomitant]
     Indication: CONTRACEPTION
     Dosage: 1/DAY
  3. LIALDA [Concomitant]
     Indication: CROHN^S DISEASE
  4. VALIUM [Concomitant]
     Indication: ANXIETY
     Dosage: 3/DAY AS NEEDED
  5. ATIVAN [Concomitant]
     Indication: ANXIETY
     Dosage: AS NEEDED
  6. CALCIUM [Concomitant]
     Indication: PRODUCT USED FOR UNKNOWN INDICATION
     Dosage: 1/DAY
  7. VITAMIN D [Concomitant]
     Indication: PRODUCT USED FOR UNKNOWN INDICATION
     Dosage: 1/DAY
  8. PROBIOTIC [Concomitant]
     Indication: PROBIOTIC THERAPY
     Dosage: 1/DAY

REACTIONS (2)
  - Abdominal pain [Not Recovered/Not Resolved]
  - Musculoskeletal chest pain [Not Recovered/Not Resolved]
